FAERS Safety Report 9174747 (Version 2)
Quarter: 2013Q2

REPORT INFORMATION
  Report Type: Spontaneous
  Country: US (occurrence: US)
  Receive Date: 20130320
  Receipt Date: 20130522
  Transmission Date: 20140414
  Serious: Yes (Hospitalization, Other)
  Sender: FDA-Public Use
  Company Number: US-ELI_LILLY_AND_COMPANY-US201303002704

PATIENT
  Sex: Female

DRUGS (14)
  1. CYMBALTA [Suspect]
     Indication: DEPRESSION
     Dosage: 60 MG, QD
  2. LORAZEPAM [Concomitant]
  3. FUROSEMIDE [Concomitant]
  4. LISINOPRIL [Concomitant]
  5. NEXIUM [Concomitant]
  6. ISOSORBIDE [Concomitant]
  7. TRAMADOL [Concomitant]
  8. FLEXERIL [Concomitant]
  9. ARMOUR THYROID [Concomitant]
  10. RESTOR [Concomitant]
  11. POTASSIUM [Concomitant]
  12. ASPIRIN [Concomitant]
  13. VITAMIN D NOS [Concomitant]
  14. OXYCONTIN [Concomitant]

REACTIONS (5)
  - Loss of consciousness [Unknown]
  - Feeling abnormal [Unknown]
  - Abnormal behaviour [Unknown]
  - Drug ineffective [Unknown]
  - Bronchitis [Unknown]
